FAERS Safety Report 16925564 (Version 4)
Quarter: 2020Q2

REPORT INFORMATION
  Report Type: Report from Study
  Country: None (occurrence: US)
  Receive Date: 20191016
  Receipt Date: 20200615
  Transmission Date: 20200713
  Serious: Yes (Other)
  Sender: FDA-Public Use
  Company Number: FR-ABBVIE-19K-056-2964625-00

PATIENT
  Age: 73 Year
  Sex: Female

DRUGS (1)
  1. DUODOPA [Suspect]
     Active Substance: CARBIDOPA\LEVODOPA
     Indication: PARKINSON^S DISEASE
     Route: 050
     Dates: start: 201909

REACTIONS (12)
  - Upper limb fracture [Unknown]
  - Weight decreased [Not Recovered/Not Resolved]
  - Wound [Unknown]
  - Fall [Recovered/Resolved]
  - Crying [Unknown]
  - Contusion [Unknown]
  - Fall [Unknown]
  - Stoma site reaction [Recovering/Resolving]
  - Hypersomnia [Unknown]
  - Aggression [Unknown]
  - Nightmare [Unknown]
  - Stoma site discharge [Unknown]

NARRATIVE: CASE EVENT DATE: 2019
